FAERS Safety Report 10686811 (Version 3)
Quarter: 2015Q3

REPORT INFORMATION
  Report Type: Spontaneous
  Country: JP (occurrence: JP)
  Receive Date: 20150101
  Receipt Date: 20150928
  Transmission Date: 20151125
  Serious: Yes (Death, Other)
  Sender: FDA-Public Use
  Company Number: JP-AMGEN-JPNSP2014101185

PATIENT
  Age: 70 Year
  Sex: Male
  Weight: 65 kg

DRUGS (14)
  1. VECTIBIX [Suspect]
     Active Substance: PANITUMUMAB
     Indication: METASTASES TO LIVER
  2. FRANDOL [Concomitant]
     Active Substance: ISOSORBIDE DINITRATE
     Dosage: 1 DF, QD
     Route: 062
  3. EPADEL-S [Concomitant]
     Active Substance: ETHYL ICOSAPENTATE\ICOSAPENT
     Dosage: 900 MG, TID
     Route: 048
  4. ITOROL [Concomitant]
     Active Substance: ISOSORBIDE MONONITRATE
     Dosage: 20 MG, BID
     Route: 048
  5. PREDONINE [Concomitant]
     Active Substance: PREDNISOLONE\PREDNISOLONE ACETATE\PREDNISOLONE SODIUM SUCCINATE
     Dosage: 7.5 MG, QD
     Route: 048
  6. FAMOTIDINE. [Concomitant]
     Active Substance: FAMOTIDINE
     Dosage: 20 MG, QD
     Route: 048
  7. VECTIBIX [Suspect]
     Active Substance: PANITUMUMAB
     Indication: COLON CANCER
     Dosage: UNK
     Route: 041
  8. NICORANDIL [Concomitant]
     Active Substance: NICORANDIL
     Dosage: 5 MG, TID
     Route: 048
  9. TICLOPIDINE HYDROCHLORIDE. [Concomitant]
     Active Substance: TICLOPIDINE HYDROCHLORIDE
     Dosage: 100 MG, BID
     Route: 048
  10. ARTIST [Concomitant]
     Active Substance: CARVEDILOL
     Dosage: 10 MG, BID
     Route: 048
  11. LASIX [Concomitant]
     Active Substance: FUROSEMIDE
     Dosage: 20 MG, QD
     Route: 048
  12. BAYASPIRIN [Concomitant]
     Active Substance: ASPIRIN
     Dosage: 100 MG, QD
     Route: 048
  13. NOVORAPID [Concomitant]
     Active Substance: INSULIN ASPART
     Dosage: 2 IU, QD
     Route: 050
  14. ATELEC [Concomitant]
     Active Substance: CILNIDIPINE
     Dosage: 15 MG, UNK
     Route: 048

REACTIONS (5)
  - Dermatitis acneiform [Unknown]
  - Colon cancer [Fatal]
  - Condition aggravated [Fatal]
  - Paronychia [Unknown]
  - Pruritus [Unknown]
